FAERS Safety Report 4704109-4 (Version None)
Quarter: 2005Q2

REPORT INFORMATION
  Report Type: 
  Country: None (occurrence: None)
  Receive Date: 20050629
  Receipt Date: 20050623
  Transmission Date: 20051028
  Serious: Yes (Hospitalization)
  Sender: FDA-Public Use
  Company Number: 11636

PATIENT
  Age: 36 Year
  Sex: Male

DRUGS (6)
  1. FLOXURIDINE [Suspect]
     Indication: COLON CANCER
     Dosage: 0.25 MG/KG IA
  2. DEXAMETHASONE [Concomitant]
  3. HEPARIN [Concomitant]
  4. FLUOROURACIL [Concomitant]
  5. OXALIPLATIN [Concomitant]
  6. FOLINIC ACID [Concomitant]

REACTIONS (6)
  - ABASIA [None]
  - CATHETER RELATED COMPLICATION [None]
  - DRUG TOXICITY [None]
  - GASTRIC ULCER [None]
  - PAIN IN EXTREMITY [None]
  - PALMAR-PLANTAR ERYTHRODYSAESTHESIA SYNDROME [None]
